FAERS Safety Report 4505994-1 (Version None)
Quarter: 2004Q4

REPORT INFORMATION
  Report Type: 
  Country: None (occurrence: None)
  Receive Date: 20041025
  Receipt Date: 20030925
  Transmission Date: 20050328
  Serious: Yes (Other)
  Sender: FDA-Public Use
  Company Number: US-JNFJOC-20030906293

PATIENT
  Age: 52 Year
  Sex: Female
  Weight: 90.7194 kg

DRUGS (17)
  1. REMICADE [Suspect]
     Indication: RHEUMATOID ARTHRITIS
     Dosage: , 1 IN 1 DAY, INTRAVENOUS
     Route: 042
     Dates: start: 20030826
  2. REMICADE [Suspect]
     Indication: RHEUMATOID ARTHRITIS
     Dosage: , 1 IN 1 DAY, INTRAVENOUS
     Route: 042
     Dates: start: 20030918
  3. DEMADEX [Concomitant]
  4. ZOLOFT [Concomitant]
  5. DIOVAN [Concomitant]
  6. FOLIC ACID [Concomitant]
  7. VITAMIN C (ASCORBIC ACID) [Concomitant]
  8. IRON (IRON) [Concomitant]
  9. CALCIUM (CALCIUM) [Concomitant]
  10. BEXTRA [Concomitant]
  11. EVOXAC [Concomitant]
  12. SULFASALZINE (SULFASALZINE) [Concomitant]
  13. PINDOLOL [Concomitant]
  14. PHENOBARB (PHENOBARBITAL SODIUM) [Concomitant]
  15. PROTONIX [Concomitant]
  16. MDP (TECHNETIUM TC 99M MEDRONATE) [Concomitant]
  17. POTASSIUM ([POTASSIUM) [Concomitant]

REACTIONS (3)
  - CHEST DISCOMFORT [None]
  - DYSPNOEA [None]
  - PULMONARY OEDEMA [None]
